FAERS Safety Report 16589510 (Version 1)
Quarter: 2019Q3

REPORT INFORMATION
  Report Type: Spontaneous
  Country: FR (occurrence: FR)
  Receive Date: 20190718
  Receipt Date: 20190718
  Transmission Date: 20191004
  Serious: Yes (Life-Threatening, Hospitalization)
  Sender: FDA-Public Use
  Company Number: FR-TEVA-2019-FR-1078158

PATIENT
  Age: 68 Year
  Sex: Male

DRUGS (9)
  1. FUROSEMIDE. [Concomitant]
     Active Substance: FUROSEMIDE
  2. BISOCE 5 MG, COMPRIME PELLICULE SECABLE [Suspect]
     Active Substance: BISOPROLOL FUMARATE
     Indication: ATRIAL FIBRILLATION
     Dosage: 5 MG PER DAY
     Route: 048
     Dates: start: 20190620, end: 20190623
  3. ALLOPURINOL. [Concomitant]
     Active Substance: ALLOPURINOL
  4. LOSARTAN POTASSIQUE [Concomitant]
     Active Substance: LOSARTAN POTASSIUM
  5. LANSOPRAZOLE. [Concomitant]
     Active Substance: LANSOPRAZOLE
  6. PRAVASTATINE SODIQUE [Suspect]
     Active Substance: PRAVASTATIN SODIUM
     Route: 065
  7. MIANSERINE (CHLORHYDRATE DE) [Concomitant]
     Active Substance: MIANSERIN HYDROCHLORIDE
  8. ISOPTINE [Concomitant]
     Active Substance: VERAPAMIL HYDROCHLORIDE
  9. ELIQUIS [Concomitant]
     Active Substance: APIXABAN

REACTIONS (1)
  - Respiratory distress [Recovering/Resolving]

NARRATIVE: CASE EVENT DATE: 20190623
